FAERS Safety Report 9736138 (Version 1)
Quarter: 2013Q4

REPORT INFORMATION
  Report Type: Spontaneous
  Country: BR (occurrence: BR)
  Receive Date: 20131206
  Receipt Date: 20131206
  Transmission Date: 20140711
  Serious: Yes (Other)
  Sender: FDA-Public Use
  Company Number: PHHY2013BR141062

PATIENT
  Age: 66 Year
  Sex: Female
  Weight: 75 kg

DRUGS (7)
  1. ATENOLOL [Suspect]
     Indication: HYPERTENSION
     Dosage: 50 MG, QD
     Route: 048
     Dates: start: 2007
  2. SIMVASTATIN [Suspect]
     Indication: BLOOD TRIGLYCERIDES INCREASED
     Route: 048
     Dates: start: 2007
  3. CRESTOR [Concomitant]
  4. LIPLESS [Concomitant]
  5. GLIFAGE [Concomitant]
  6. TRAYENTA [Concomitant]
  7. ATACAND [Concomitant]

REACTIONS (7)
  - Hypertension [Unknown]
  - Hyperglycaemia [Unknown]
  - Joint swelling [Recovering/Resolving]
  - Insomnia [Recovered/Resolved]
  - Blood triglycerides increased [Recovered/Resolved]
  - Nausea [Recovered/Resolved]
  - Depression [Recovering/Resolving]
